FAERS Safety Report 11419564 (Version 1)
Quarter: 2015Q3

REPORT INFORMATION
  Report Type: Spontaneous
  Country: JP (occurrence: JP)
  Receive Date: 20150826
  Receipt Date: 20150826
  Transmission Date: 20151125
  Serious: Yes (Other)
  Sender: FDA-Public Use
  Company Number: JP-PFIZER INC-2015280684

PATIENT
  Age: 70 Year

DRUGS (1)
  1. VFEND [Suspect]
     Active Substance: VORICONAZOLE
     Indication: ASPERGILLUS INFECTION
     Dosage: UNK
     Route: 048

REACTIONS (3)
  - Hypochloraemia [Unknown]
  - Hyponatraemia [Unknown]
  - Altered state of consciousness [Unknown]
